FAERS Safety Report 5301095-3 (Version None)
Quarter: 2007Q2

REPORT INFORMATION
  Report Type: 
  Country: None (occurrence: None)
  Receive Date: 20070418
  Receipt Date: 20070413
  Transmission Date: 20071010
  Serious: Yes (Other)
  Sender: FDA-Public Use
  Company Number: GB-ROXANE LABORATORIES, INC-2007-DE-02166GD

PATIENT
  Age: 60 Year
  Sex: Male

DRUGS (3)
  1. MORPHINE [Suspect]
     Indication: ANALGESIC EFFECT
     Route: 042
  2. CARBON DIOXIDE [Suspect]
     Indication: INGUINAL HERNIA REPAIR
  3. CARBON DIOXIDE [Suspect]
     Indication: LAPAROSCOPIC SURGERY

REACTIONS (5)
  - ACIDOSIS [None]
  - GRAND MAL CONVULSION [None]
  - HYPERCAPNIA [None]
  - RESPIRATORY RATE DECREASED [None]
  - SUBCUTANEOUS EMPHYSEMA [None]
